FAERS Safety Report 24418121 (Version 3)
Quarter: 2025Q2

REPORT INFORMATION
  Report Type: Report from Study
  Country: US (occurrence: US)
  Receive Date: 20241009
  Receipt Date: 20250512
  Transmission Date: 20250716
  Serious: No
  Sender: SUNOVION
  Company Number: US-SUMITOMO PHARMA SWITZERLAND GMBH-2024SPA003504

PATIENT

DRUGS (2)
  1. ORGOVYX [Suspect]
     Active Substance: RELUGOLIX
     Indication: Prostate cancer
     Dosage: 360 MG, SINGLE
     Route: 048
     Dates: start: 20240913, end: 20240913
  2. ORGOVYX [Suspect]
     Active Substance: RELUGOLIX
     Dosage: 120 MG, QD
     Route: 048
     Dates: start: 20240914

REACTIONS (9)
  - Gastrointestinal disorder [Unknown]
  - Dysuria [Unknown]
  - Malaise [Unknown]
  - Bone pain [Unknown]
  - Depression [Unknown]
  - Fatigue [Unknown]
  - Arthralgia [Unknown]
  - Insomnia [Unknown]
  - Libido decreased [Unknown]
